FAERS Safety Report 8909968 (Version 1)
Quarter: 2012Q4

REPORT INFORMATION
  Report Type: 
  Country: US (occurrence: US)
  Receive Date: 20121115
  Receipt Date: 20121115
  Transmission Date: 20130627
  Serious: No
  Sender: FDA-Public Use
  Company Number: US-PFIZER INC-2012284749

PATIENT
  Age: 59 Year
  Sex: Male
  Weight: 79.37 kg

DRUGS (2)
  1. GABAPENTIN [Suspect]
     Indication: NERVE PAIN
     Dosage: 300 mg, 3x/day
     Route: 048
     Dates: start: 20121015
  2. ENALAPRIL [Concomitant]
     Indication: BLOOD PRESSURE HIGH
     Dosage: 2.5mg tablet

REACTIONS (1)
  - Drug effect incomplete [Unknown]
